FAERS Safety Report 10382630 (Version 1)
Quarter: 2014Q3

REPORT INFORMATION
  Report Type: Spontaneous
  Country: US (occurrence: US)
  Receive Date: 20140813
  Receipt Date: 20140813
  Transmission Date: 20150326
  Serious: Yes (Other)
  Sender: FDA-Public Use
  Company Number: US-SA-2014SA011575

PATIENT
  Sex: Female

DRUGS (1)
  1. MULTAQ [Suspect]
     Active Substance: DRONEDARONE
     Route: 065
     Dates: start: 2014

REACTIONS (4)
  - Heart rate irregular [Unknown]
  - Atrial fibrillation [Unknown]
  - Therapeutic response decreased [Unknown]
  - Drug dose omission [Unknown]
